FAERS Safety Report 24616926 (Version 1)
Quarter: 2024Q4

REPORT INFORMATION
  Report Type: Spontaneous
  Country: GB (occurrence: GB)
  Receive Date: 20241114
  Receipt Date: 20241114
  Transmission Date: 20250114
  Serious: Yes (Other)
  Sender: SANDOZ
  Company Number: GB-MHRA-TPP10762767C5213378YC1731423157196

PATIENT
  Age: 84 Year
  Sex: Female
  Weight: 80 kg

DRUGS (6)
  1. CLARITHROMYCIN [Suspect]
     Active Substance: CLARITHROMYCIN
     Indication: Ill-defined disorder
     Dosage: TAKE ONE TABLET TWICE A DAY FOR 7 DAYS, TO TREA...
     Route: 065
     Dates: start: 20241105, end: 20241112
  2. CALCIUM\CHOLECALCIFEROL [Concomitant]
     Active Substance: CALCIUM\CHOLECALCIFEROL
     Indication: Ill-defined disorder
     Dosage: TAKE ONE TWICE DASILY
     Route: 065
     Dates: start: 20201124
  3. CANDESARTAN [Concomitant]
     Active Substance: CANDESARTAN
     Indication: Ill-defined disorder
     Dosage: TAKE ONE DAILY
     Route: 065
     Dates: start: 20191001
  4. Clinitas [Concomitant]
     Indication: Ill-defined disorder
     Dosage: UNK, APPLY DAILY AS DIRECTED, TPP YC
     Route: 065
     Dates: start: 20140528
  5. FLUCLOXACILLIN [Concomitant]
     Active Substance: FLUCLOXACILLIN
     Indication: Ill-defined disorder
     Dosage: 10ML TO BE TAKEN FOUR TIMES DAILY FOR FIVE DAYS, TO TREAT INFECTION
     Route: 065
     Dates: start: 20241112
  6. INDAPAMIDE [Concomitant]
     Active Substance: INDAPAMIDE
     Indication: Ill-defined disorder
     Dosage: TAKE ONE EACH MORNING
     Route: 065
     Dates: start: 20131220

REACTIONS (1)
  - Lip swelling [Recovered/Resolved]
